FAERS Safety Report 16733361 (Version 1)
Quarter: 2019Q3

REPORT INFORMATION
  Report Type: Spontaneous
  Country: US (occurrence: US)
  Receive Date: 20190823
  Receipt Date: 20190823
  Transmission Date: 20191005
  Serious: No
  Sender: FDA-Public Use
  Company Number: US-ZYDUS-026218

PATIENT
  Age: 56 Year
  Sex: Female
  Weight: 56.3 kg

DRUGS (4)
  1. LEVOTHYROXINE. [Concomitant]
     Active Substance: LEVOTHYROXINE
     Indication: HYPOTHYROIDISM
     Route: 065
  2. ANASTROZOLE. [Suspect]
     Active Substance: ANASTROZOLE
     Indication: DRUG THERAPY
     Route: 048
     Dates: start: 201806, end: 20180723
  3. CALCIUM CARBONATE/CALCIUM LACTOGLUCONATE [Concomitant]
     Indication: HYPOPARATHYROIDISM
     Route: 065
  4. CYANOCOBALAMIN. [Concomitant]
     Active Substance: CYANOCOBALAMIN
     Indication: PERNICIOUS ANAEMIA
     Route: 065

REACTIONS (1)
  - Vision blurred [Not Recovered/Not Resolved]
